FAERS Safety Report 5957367-2 (Version None)
Quarter: 2008Q4

REPORT INFORMATION
  Report Type: 
  Country: None (occurrence: None)
  Receive Date: 20081118
  Receipt Date: 20081104
  Transmission Date: 20090506
  Serious: Yes (Death, Hospitalization, Other)
  Sender: FDA-Public Use
  Company Number: US-GENENTECH-271631

PATIENT
  Sex: Male

DRUGS (3)
  1. BEVACIZUMAB [Suspect]
     Indication: SMALL CELL LUNG CANCER STAGE UNSPECIFIED
     Dosage: 15 MG/KG, Q21D
     Route: 042
     Dates: start: 20050223
  2. CISPLATIN [Suspect]
     Indication: SMALL CELL LUNG CANCER EXTENSIVE STAGE
     Dosage: 60 MG/M2, Q21D
     Route: 042
     Dates: start: 20050223
  3. ETOPOSIDE [Suspect]
     Indication: SMALL CELL LUNG CANCER EXTENSIVE STAGE
     Dosage: 120 MG/M2, QDX3D/21DC
     Route: 042
     Dates: start: 20050223

REACTIONS (2)
  - DYSPNOEA [None]
  - INFECTION [None]
